FAERS Safety Report 5402841-0 (Version None)
Quarter: 2007Q3

REPORT INFORMATION
  Report Type: 
  Country: None (occurrence: None)
  Receive Date: 20070801
  Receipt Date: 20070724
  Transmission Date: 20080115
  Serious: Yes (Hospitalization)
  Sender: FDA-Public Use
  Company Number: HQWYE194824JUL07

PATIENT
  Sex: Male

DRUGS (2)
  1. INDERAL [Suspect]
     Indication: DYSKINESIA
     Route: 048
     Dates: end: 20061114
  2. INDERAL [Suspect]
     Route: 048
     Dates: start: 20061115, end: 20061207

REACTIONS (2)
  - DELUSION [None]
  - DELUSIONAL DISORDER, PERSECUTORY TYPE [None]
